FAERS Safety Report 13166865 (Version 1)
Quarter: 2017Q1

REPORT INFORMATION
  Report Type: Spontaneous
  Country: US (occurrence: US)
  Receive Date: 20170131
  Receipt Date: 20170131
  Transmission Date: 20170428
  Serious: Yes (Hospitalization, Other)
  Sender: FDA-Public Use
  Company Number: US-ASTRAZENECA-2017SE09268

PATIENT
  Age: 691 Month
  Sex: Female
  Weight: 97.5 kg

DRUGS (1)
  1. FASLODEX [Suspect]
     Active Substance: FULVESTRANT
     Indication: BREAST CANCER
     Route: 030
     Dates: start: 201401, end: 201604

REACTIONS (4)
  - Fall [Unknown]
  - Metastases to spine [Unknown]
  - Gait disturbance [Unknown]
  - Paraplegia [Unknown]

NARRATIVE: CASE EVENT DATE: 201509
